FAERS Safety Report 9929891 (Version 1)
Quarter: 2014Q1

REPORT INFORMATION
  Report Type: Spontaneous
  Country: US (occurrence: US)
  Receive Date: 20140227
  Receipt Date: 20140227
  Transmission Date: 20141002
  Serious: Yes (Other)
  Sender: FDA-Public Use
  Company Number: US-B.I. PHARMACEUTICALS,INC./RIDGEFIELD-2014-BI-08114BP

PATIENT
  Sex: Female
  Weight: 99 kg

DRUGS (23)
  1. SPIRIVA [Suspect]
     Indication: ASTHMA
     Dosage: 18 MCG
     Route: 055
     Dates: start: 2011
  2. ONGLYZA [Concomitant]
     Indication: TYPE 2 DIABETES MELLITUS
     Dosage: 5 MG
     Route: 048
  3. METFORMIN [Concomitant]
     Indication: TYPE 2 DIABETES MELLITUS
     Dosage: 2000 MG
     Route: 048
  4. PRANDIN [Concomitant]
     Indication: TYPE 2 DIABETES MELLITUS
     Dosage: 0.15 MG
     Route: 048
  5. HUMALOG QUICK PEN [Concomitant]
     Indication: TYPE 2 DIABETES MELLITUS
     Dosage: FORMULATION: SUBCUTANEOUS STRENGTH: 20 UNITS; DAILY DOSE: 60 MG
     Route: 058
  6. LANTUS SOLASTAR [Concomitant]
     Indication: TYPE 2 DIABETES MELLITUS
     Dosage: FORMULATION: SUBCUTANEOUS STRENGTH: 30 UNITS; DAILY DOSE: 30 UNITS
     Route: 058
  7. ALBUTEROL [Concomitant]
     Indication: ASTHMA
     Dosage: 8 PUF
     Route: 055
  8. ALBUTEROL 0.083% [Concomitant]
     Indication: ASTHMA
     Dosage: FORMULATION: INHALATION SOLUTION
     Route: 065
  9. IPRATROPIUM BROMIDE [Concomitant]
     Indication: ASTHMA
     Dosage: FORMULATION: INHALATION SOLUTION
     Route: 065
  10. SINGULAIR [Concomitant]
     Indication: ASTHMA
     Dosage: 10 MG
     Route: 048
  11. SYMBICORT 160.2.5 [Concomitant]
     Indication: ASTHMA
     Dosage: 2 PUF
     Route: 065
  12. CETIRIZINE [Concomitant]
     Indication: PRODUCT USED FOR UNKNOWN INDICATION
     Dosage: 10 MG
     Route: 048
  13. FLONASE [Concomitant]
     Dosage: 4 PUF
     Route: 045
  14. LORAZEPAM 0.5 MG [Concomitant]
     Indication: PRODUCT USED FOR UNKNOWN INDICATION
     Dosage: 0.15 MG
     Route: 048
  15. CARDIA XT 240/24 HOUR [Concomitant]
     Indication: HYPERTENSION
     Dosage: 240 MG
     Route: 048
  16. TRIAMTERENE/HCTZ 37.5/25 [Concomitant]
     Indication: HYPERTENSION
     Dosage: STRENGTH: 37.5/25 MG; DAILY DOSE: 37.5/25 MG
     Route: 048
  17. SIMVASTATIN [Concomitant]
     Indication: BLOOD CHOLESTEROL INCREASED
     Dosage: 10 MG
     Route: 048
  18. LOMOTIL 2.5 MG [Concomitant]
     Indication: DIARRHOEA
     Route: 065
  19. NORCOR [Concomitant]
     Indication: PAIN
     Dosage: STRENGTH: 10-325 MG;
     Route: 048
  20. PANTOPRAZOLE [Concomitant]
     Indication: GASTROOESOPHAGEAL REFLUX DISEASE
     Dosage: 40 MG
     Route: 048
  21. ZOFRAN [Concomitant]
     Indication: NAUSEA
     Route: 048
  22. ZOMIG [Concomitant]
     Indication: MIGRAINE
     Route: 055
  23. DEXAMETHASONE [Concomitant]
     Indication: CHEMOTHERAPY
     Dosage: 4 MG
     Route: 048

REACTIONS (2)
  - Neoplasm malignant [Not Recovered/Not Resolved]
  - Off label use [Unknown]
